FAERS Safety Report 22989734 (Version 4)
Quarter: 2023Q4

REPORT INFORMATION
  Report Type: Report from Study
  Country: CA (occurrence: CA)
  Receive Date: 20230927
  Receipt Date: 20231102
  Transmission Date: 20240109
  Serious: Yes (Other)
  Sender: FDA-Public Use
  Company Number: CA-TEVA-2023-CA-2930334

PATIENT
  Age: 42 Year
  Sex: Female

DRUGS (3)
  1. AJOVY [Suspect]
     Active Substance: FREMANEZUMAB-VFRM
     Indication: Migraine prophylaxis
     Route: 058
     Dates: start: 20230623, end: 2023
  2. AJOVY [Suspect]
     Active Substance: FREMANEZUMAB-VFRM
     Route: 058
     Dates: start: 20230623, end: 2023
  3. PROPRANOLOL [Concomitant]
     Active Substance: PROPRANOLOL HYDROCHLORIDE
     Indication: Product used for unknown indication

REACTIONS (10)
  - Anhedonia [Unknown]
  - Palpitations [Unknown]
  - Hyperarousal [Unknown]
  - Myocardial infarction [Unknown]
  - Panic attack [Recovered/Resolved]
  - Cardiac flutter [Unknown]
  - Anxiety [Unknown]
  - Depression [Unknown]
  - Fear [Unknown]
  - Sinusitis [Unknown]

NARRATIVE: CASE EVENT DATE: 20230101
